FAERS Safety Report 13858428 (Version 1)
Quarter: 2017Q3

REPORT INFORMATION
  Report Type: Spontaneous
  Country: US (occurrence: US)
  Receive Date: 20170810
  Receipt Date: 20170810
  Transmission Date: 20171127
  Serious: Yes (Life-Threatening, Hospitalization, Disabling, Other)
  Sender: FDA-Public Use
  Company Number: None

PATIENT
  Sex: Female
  Weight: 89.1 kg

DRUGS (8)
  1. SCOOTER [Concomitant]
  2. GEADON [Concomitant]
  3. WHEELCHAIR [Concomitant]
     Active Substance: DEVICE
  4. IRON [Concomitant]
     Active Substance: IRON
  5. TOILET SEAT EXTENDER [Concomitant]
  6. SHOWER CHAIR HAND RAILS [Concomitant]
  7. PREGABLIN [Suspect]
     Active Substance: PREGABALIN
     Indication: NEURALGIA
     Dosage: ?          QUANTITY:60 CAPSULE(S);?
     Route: 048
  8. WALKER SEAT [Concomitant]
     Active Substance: DEVICE

REACTIONS (6)
  - Muscular weakness [None]
  - Condition aggravated [None]
  - Withdrawal syndrome [None]
  - Hypoaesthesia [None]
  - Paraesthesia [None]
  - Self-injurious ideation [None]

NARRATIVE: CASE EVENT DATE: 20160113
